FAERS Safety Report 7892405-1 (Version None)
Quarter: 2011Q4

REPORT INFORMATION
  Report Type: 
  Country: None (occurrence: None)
  Receive Date: 20111104
  Receipt Date: 20111026
  Transmission Date: 20120403
  Serious: Yes (Other)
  Sender: FDA-Public Use
  Company Number: US-JNJFOC-20111004925

PATIENT
  Sex: Female
  Weight: 58.97 kg

DRUGS (10)
  1. NUCYNTA [Suspect]
     Dosage: ANOTHER HALF OF 100MG TAKEN AFTER 30 MINUTES
     Route: 048
     Dates: end: 20111001
  2. NASACORT [Concomitant]
     Route: 065
  3. REYATAZ [Concomitant]
     Route: 065
  4. ATIVAN [Concomitant]
     Route: 065
  5. NORVIR [Concomitant]
     Route: 065
  6. ALBUTEROL [Concomitant]
     Route: 065
  7. VICODIN [Concomitant]
     Route: 065
  8. NUCYNTA [Suspect]
     Indication: PRODUCT USED FOR UNKNOWN INDICATION
     Dosage: HALF A TABLET TAKEN
     Route: 048
  9. TRUVADA [Concomitant]
     Route: 065
  10. UNKNOWN MEDICATION [Concomitant]
     Route: 065

REACTIONS (2)
  - DYSTONIA [None]
  - WRONG TECHNIQUE IN DRUG USAGE PROCESS [None]
